FAERS Safety Report 9765139 (Version 1)
Quarter: 2013Q4

REPORT INFORMATION
  Report Type: Spontaneous
  Country: US (occurrence: US)
  Receive Date: 20131217
  Receipt Date: 20131217
  Transmission Date: 20140711
  Serious: No
  Sender: FDA-Public Use
  Company Number: US-GLAXOSMITHKLINE-A0999448A

PATIENT
  Age: 75 Year
  Sex: Female

DRUGS (4)
  1. VOTRIENT [Suspect]
     Indication: RENAL CANCER STAGE IV
     Dosage: 200MG PER DAY
     Route: 048
     Dates: start: 201208
  2. AMOXICILLIN [Suspect]
     Indication: TOOTH ABSCESS
     Route: 048
  3. COREG [Concomitant]
  4. BENTYL [Concomitant]

REACTIONS (3)
  - Abdominal pain [Recovered/Resolved]
  - Diarrhoea [Unknown]
  - Ill-defined disorder [Unknown]
